FAERS Safety Report 15518051 (Version 1)
Quarter: 2018Q4

REPORT INFORMATION
  Report Type: Spontaneous
  Country: US (occurrence: US)
  Receive Date: 20181011
  Receipt Date: 20181011
  Transmission Date: 20190205
  Serious: No
  Sender: FDA-Public Use
  Company Number: None

PATIENT
  Age: 48 Year
  Sex: Female

DRUGS (1)
  1. ZARXIO [Suspect]
     Active Substance: FILGRASTIM-SNDZ
     Indication: COLON CANCER
     Dosage: ?          OTHER FREQUENCY:QD ON DAYS 9 TO 14;?
     Route: 058
     Dates: start: 20180427, end: 20181001

REACTIONS (1)
  - Bone pain [None]

NARRATIVE: CASE EVENT DATE: 20180901
